FAERS Safety Report 17150108 (Version 1)
Quarter: 2019Q4

REPORT INFORMATION
  Report Type: Spontaneous
  Country: FR (occurrence: FR)
  Receive Date: 20191213
  Receipt Date: 20191213
  Transmission Date: 20200122
  Serious: Yes (Other)
  Sender: FDA-Public Use
  Company Number: FR-ACCORD-165039

PATIENT
  Age: 54 Year
  Sex: Male
  Weight: 81 kg

DRUGS (11)
  1. MYFORTIC [Suspect]
     Active Substance: MYCOPHENOLATE SODIUM
     Indication: RENAL TRANSPLANT
     Dosage: STRENGTH: 360 MG, GASTRO-RESISTANT FILM-COATED TABLET
     Dates: end: 20191016
  2. SOLUPRED [Concomitant]
     Dosage: STRENGTH: 5 MG
  3. ADVAGRAF [Concomitant]
     Active Substance: TACROLIMUS
  4. TIENAM [Concomitant]
     Active Substance: CILASTATIN SODIUM\IMIPENEM
     Indication: OSTEOMYELITIS
     Dates: start: 20190930, end: 20191014
  5. ATORVASTATIN [Concomitant]
     Active Substance: ATORVASTATIN
  6. BISOCE [Concomitant]
     Active Substance: BISOPROLOL
     Dosage: STRENGTH: 2.5 MG SCORED FILM-COATED TABLETS
  7. LOVENOX [Concomitant]
     Active Substance: ENOXAPARIN SODIUM
     Dosage: STRENGTH: 4000 IU ANTI-XA/0.4 ML SOLUTION FOR INJECTION IN CARTRIDGE
  8. DAPTOMYCIN. [Suspect]
     Active Substance: DAPTOMYCIN
     Indication: OSTEOMYELITIS
     Dates: start: 20190930, end: 20191018
  9. WELLVONE [Concomitant]
     Active Substance: ATOVAQUONE
     Dosage: STRENGTH: 750 MG/5 ML, ORAL SUSPENSION IN SACHET-DOSE
  10. AUGMENTIN [Concomitant]
     Active Substance: AMOXICILLIN\CLAVULANATE POTASSIUM
     Indication: INFECTION
     Dates: start: 20190912, end: 20190930
  11. KARDEGIC [Concomitant]
     Active Substance: ASPIRIN DL-LYSINE
     Dosage: STRENGTH: 75 MG POWDER FOR ORAL SOLUTION IN SACHET-DOSE

REACTIONS (2)
  - Neutropenia [Recovered/Resolved]
  - Off label use [Unknown]

NARRATIVE: CASE EVENT DATE: 20191014
